FAERS Safety Report 18707353 (Version 1)
Quarter: 2021Q1

REPORT INFORMATION
  Report Type: Spontaneous
  Country: ES (occurrence: ES)
  Receive Date: 20210106
  Receipt Date: 20210106
  Transmission Date: 20210419
  Serious: Yes (Hospitalization)
  Sender: FDA-Public Use
  Company Number: ES-ROCHE-2744821

PATIENT
  Age: 82 Year
  Sex: Male
  Weight: 72 kg

DRUGS (4)
  1. LEVOFLOXACINO [Suspect]
     Active Substance: LEVOFLOXACIN
     Indication: COVID-19
     Dosage: 750 MG A DAY ON THE 18 AND 500 MG A DAY FROM THE 19?DATE OF MOST RECENT DOSE OF LEVOFLOXACIN: 20/MAR
     Route: 042
     Dates: start: 20200318
  2. KALETRA [Suspect]
     Active Substance: LOPINAVIR\RITONAVIR
     Indication: COVID-19
     Dosage: DATE OF MOST RECENT DOSE OF LOPINAVIR;RITONAVIR: 25/MAR/2020
     Route: 048
     Dates: start: 20200318
  3. HYDROXYCHLOROQUINE [Suspect]
     Active Substance: HYDROXYCHLOROQUINE
     Indication: COVID-19
     Dosage: 400 MG FIRST DAY, THEN 200 MG?DATE OF MOST RECENT DOSE OF HYDROXYCHLOROQUINE: 25/MAR/2020
     Route: 048
     Dates: start: 20200318
  4. TOCILIZUMAB. [Suspect]
     Active Substance: TOCILIZUMAB
     Indication: COVID-19
     Dosage: DATE OF MOST RECENT DOSE OF TOCILIZUMAB: 19/MAR/2020
     Route: 042
     Dates: start: 20200318

REACTIONS (1)
  - Long QT syndrome [Recovered/Resolved]

NARRATIVE: CASE EVENT DATE: 20200318
